FAERS Safety Report 17484544 (Version 2)
Quarter: 2020Q1

REPORT INFORMATION
  Report Type: Report from Study
  Country: GB (occurrence: GB)
  Receive Date: 20200302
  Receipt Date: 20200317
  Transmission Date: 20200409
  Serious: Yes (Hospitalization, Other)
  Sender: FDA-Public Use
  Company Number: GB-AMGEN-GBRSL2020033841

PATIENT
  Sex: Male

DRUGS (1)
  1. AMGEVITA [Suspect]
     Active Substance: ADALIMUMAB
     Indication: AXIAL SPONDYLOARTHRITIS
     Dosage: 40 MILLIGRAM, Q2WK
     Route: 058
     Dates: start: 20190806

REACTIONS (6)
  - Adverse drug reaction [Unknown]
  - Peripheral swelling [Unknown]
  - Mouth ulceration [Unknown]
  - Pyrexia [Unknown]
  - Mass [Unknown]
  - Nasopharyngitis [Unknown]
